FAERS Safety Report 4771847-7 (Version None)
Quarter: 2005Q3

REPORT INFORMATION
  Report Type: 
  Country: None (occurrence: None)
  Receive Date: 20050916
  Receipt Date: 20050907
  Transmission Date: 20060218
  Serious: Yes (Death, Hospitalization)
  Sender: FDA-Public Use
  Company Number: US-JNJFOC-20050902236

PATIENT
  Age: 43 Year
  Sex: Female

DRUGS (4)
  1. ACETAMINOPHEN [Suspect]
     Route: 048
  2. ACETAMINOPHEN [Suspect]
     Route: 048
  3. AMPHETAMINE [Suspect]
     Route: 048
  4. BENZODIAZEPINE [Suspect]
     Route: 048

REACTIONS (13)
  - ASPIRATION [None]
  - CARDIO-RESPIRATORY ARREST [None]
  - CONTUSION [None]
  - FALL [None]
  - GENERAL PHYSICAL HEALTH DETERIORATION [None]
  - HEPATIC FAILURE [None]
  - HYPOTENSION [None]
  - INTENTIONAL MISUSE [None]
  - LOSS OF CONSCIOUSNESS [None]
  - MYDRIASIS [None]
  - OVERDOSE [None]
  - RENAL FAILURE [None]
  - UNRESPONSIVE TO PAIN STIMULI [None]
